FAERS Safety Report 6809714-7 (Version None)
Quarter: 2010Q2

REPORT INFORMATION
  Report Type: 
  Country: None (occurrence: None)
  Receive Date: 20100630
  Receipt Date: 20100622
  Transmission Date: 20101027
  Serious: Yes (Other)
  Sender: FDA-Public Use
  Company Number: US-PFIZER INC-2010078568

PATIENT
  Sex: Female
  Weight: 58.957 kg

DRUGS (4)
  1. LIPITOR [Suspect]
     Indication: VASCULAR GRAFT
     Dosage: 20 MG, 1X/DAY
     Route: 048
     Dates: start: 20020101
  2. LEVOTHYROXINE [Concomitant]
     Indication: HYPOTHYROIDISM
     Dosage: UNK
  3. PLAVIX [Concomitant]
     Dosage: UNK
  4. NIASPAN [Concomitant]
     Dosage: UNK

REACTIONS (5)
  - HYPOTONIA [None]
  - MUSCLE ATROPHY [None]
  - MUSCLE SPASMS [None]
  - PAIN [None]
  - UNEQUAL LIMB LENGTH [None]
